FAERS Safety Report 20582565 (Version 1)
Quarter: 2022Q1

REPORT INFORMATION
  Report Type: Spontaneous
  Country: RU (occurrence: None)
  Receive Date: 20220311
  Receipt Date: 20220311
  Transmission Date: 20220423
  Serious: Yes (Other)
  Sender: FDA-Public Use
  Company Number: 2022A103025

PATIENT
  Age: 84 Year
  Sex: Female
  Weight: 49 kg

DRUGS (1)
  1. FASLODEX [Suspect]
     Active Substance: FULVESTRANT
     Indication: Breast cancer
     Route: 030
     Dates: start: 2019

REACTIONS (7)
  - COVID-19 [Unknown]
  - Pyrexia [Recovering/Resolving]
  - Metastases to bone [Unknown]
  - Cough [Recovering/Resolving]
  - Feeling hot [Recovering/Resolving]
  - Thirst [Recovering/Resolving]
  - Oedema [Unknown]

NARRATIVE: CASE EVENT DATE: 20220304
